FAERS Safety Report 26012351 (Version 2)
Quarter: 2025Q4

REPORT INFORMATION
  Report Type: Spontaneous
  Country: EU (occurrence: EU)
  Receive Date: 20251107
  Receipt Date: 20251119
  Transmission Date: 20260118
  Serious: Yes (Other)
  Sender: ABBVIE
  Company Number: EU-ABBVIE-6531687

PATIENT
  Age: 66 Year
  Sex: Female

DRUGS (2)
  1. MIRVETUXIMAB SORAVTANSINE-GYNX [Suspect]
     Active Substance: MIRVETUXIMAB SORAVTANSINE-GYNX
     Indication: Product used for unknown indication
     Dosage: LAST ADMIN DATE-2025
     Route: 042
     Dates: start: 202507
  2. MIRVETUXIMAB SORAVTANSINE-GYNX [Suspect]
     Active Substance: MIRVETUXIMAB SORAVTANSINE-GYNX
     Indication: Product used for unknown indication
     Route: 042
     Dates: start: 2025

REACTIONS (7)
  - Metastatic lymphoma [Not Recovered/Not Resolved]
  - Cerebral disorder [Recovering/Resolving]
  - Cerebral disorder [Recovered/Resolved]
  - Oedema due to hepatic disease [Recovered/Resolved]
  - Bone marrow oedema [Recovered/Resolved]
  - Brain oedema [Recovered/Resolved]
  - Ocular toxicity [Unknown]

NARRATIVE: CASE EVENT DATE: 20250101
